FAERS Safety Report 17493854 (Version 7)
Quarter: 2020Q2

REPORT INFORMATION
  Report Type: Spontaneous
  Country: RU (occurrence: RU)
  Receive Date: 20200304
  Receipt Date: 20200625
  Transmission Date: 20200713
  Serious: Yes (Death, Hospitalization, Other)
  Sender: FDA-Public Use
  Company Number: RU-SA-2020SA053724

PATIENT

DRUGS (1)
  1. KEVZARA [Suspect]
     Active Substance: SARILUMAB
     Indication: RHEUMATOID ARTHRITIS
     Dosage: 200 MG, QOW
     Dates: start: 20200120, end: 20200221

REACTIONS (22)
  - Acute kidney injury [Unknown]
  - Purulent discharge [Unknown]
  - Multiple organ dysfunction syndrome [Fatal]
  - Toxic encephalopathy [Unknown]
  - Epilepsy [Recovered/Resolved]
  - Decubitus ulcer [Unknown]
  - Sepsis [Unknown]
  - C-reactive protein increased [Unknown]
  - Loss of consciousness [Unknown]
  - Coagulopathy [Unknown]
  - Septic necrosis [Unknown]
  - Pyelonephritis chronic [Unknown]
  - Oedema peripheral [Unknown]
  - Diabetes mellitus [Unknown]
  - Pyrexia [Unknown]
  - Secondary immunodeficiency [Unknown]
  - Thrombocytopenia [Unknown]
  - Osteitis [Unknown]
  - Coronary artery disease [Unknown]
  - Bacteraemia [Unknown]
  - Abscess limb [Unknown]
  - Joint swelling [Unknown]

NARRATIVE: CASE EVENT DATE: 2020
